FAERS Safety Report 7222981-3 (Version None)
Quarter: 2011Q1

REPORT INFORMATION
  Report Type: 
  Country: None (occurrence: None)
  Receive Date: 20110112
  Receipt Date: 20090202
  Transmission Date: 20110831
  Serious: Yes (Hospitalization, Disabling, Other)
  Sender: FDA-Public Use
  Company Number: PHHY2009FR03742

PATIENT
  Age: 86 Year
  Sex: Male

DRUGS (6)
  1. FONZYLANE [Concomitant]
  2. GLEEVEC [Suspect]
     Indication: CHRONIC MYELOID LEUKAEMIA
     Dosage: 400 MG/DAY
     Dates: start: 20020315
  3. PREVISCAN [Concomitant]
  4. HEMIGOXINE [Concomitant]
  5. ALDACTONE [Concomitant]
  6. NEO-MERCAZOLE TAB [Concomitant]

REACTIONS (6)
  - ARTERIAL DISORDER [None]
  - GANGRENE [None]
  - PSEUDOMONAS INFECTION [None]
  - ARTERITIS [None]
  - HYPERPARATHYROIDISM [None]
  - CATARACT [None]
